FAERS Safety Report 7460266-0 (Version None)
Quarter: 2011Q2

REPORT INFORMATION
  Report Type: 
  Country: None (occurrence: None)
  Receive Date: 20110505
  Receipt Date: 20110427
  Transmission Date: 20111010
  Serious: Yes (Hospitalization)
  Sender: FDA-Public Use
  Company Number: AU-ROCHE-775099

PATIENT
  Age: 45 Year
  Sex: Male

DRUGS (2)
  1. DIAZEPAM [Suspect]
     Route: 065
  2. VALPROATE SODIUM [Suspect]
     Route: 065

REACTIONS (4)
  - BRAIN OEDEMA [None]
  - CEREBRAL INFARCTION [None]
  - ENCEPHALOPATHY [None]
  - INTENTIONAL OVERDOSE [None]
